FAERS Safety Report 7784488-4 (Version None)
Quarter: 2011Q3

REPORT INFORMATION
  Report Type: 
  Country: None (occurrence: None)
  Receive Date: 20110928
  Receipt Date: 20110922
  Transmission Date: 20111222
  Serious: Yes (Other)
  Sender: FDA-Public Use
  Company Number: GXKR2011DE02897

PATIENT
  Age: 48 Year
  Sex: Female

DRUGS (1)
  1. ALLOPURINOL [Suspect]
     Dosage: 100 MG, UNK
     Route: 048

REACTIONS (1)
  - MACULAR DEGENERATION [None]
